FAERS Safety Report 6339568-7 (Version None)
Quarter: 2009Q3

REPORT INFORMATION
  Report Type: 
  Country: None (occurrence: None)
  Receive Date: 20090827
  Receipt Date: 20090722
  Transmission Date: 20100115
  Serious: No
  Sender: FDA-Public Use
  Company Number: 001276

PATIENT
  Sex: Female
  Weight: 72 kg

DRUGS (1)
  1. LACOSAMIDE [Suspect]
     Dosage: SEE IMAGE
     Route: 048

REACTIONS (1)
  - DIPLOPIA [None]
